FAERS Safety Report 8201026-2 (Version None)
Quarter: 2012Q1

REPORT INFORMATION
  Report Type: 
  Country: None (occurrence: None)
  Receive Date: 20120312
  Receipt Date: 20120305
  Transmission Date: 20120608
  Serious: Yes (Other)
  Sender: FDA-Public Use
  Company Number: US-PFIZER INC-2012058861

PATIENT
  Age: 71 Year
  Sex: Male

DRUGS (4)
  1. LIPITOR [Suspect]
     Dosage: 20 MG, UNK
  2. LOVASTATIN [Suspect]
     Dosage: 40 MG, UNK
  3. ATORVASTATIN CALCIUM [Suspect]
     Dosage: 20 MG, UNK
  4. LOVASTATIN [Suspect]
     Dosage: 20 MG, UNK

REACTIONS (8)
  - MUSCULOSKELETAL STIFFNESS [None]
  - PAIN IN EXTREMITY [None]
  - ARTHRALGIA [None]
  - ABDOMINAL PAIN [None]
  - CONSTIPATION [None]
  - TERMINAL INSOMNIA [None]
  - MYALGIA [None]
  - MUSCLE SPASMS [None]
